FAERS Safety Report 6543633-9 (Version None)
Quarter: 2010Q1

REPORT INFORMATION
  Report Type: 
  Country: None (occurrence: None)
  Receive Date: 20100119
  Receipt Date: 20100119
  Transmission Date: 20100710
  Serious: Yes (Disabling)
  Sender: FDA-Public Use
  Company Number: None

PATIENT
  Age: 35 Year
  Sex: Female
  Weight: 65.9 kg

DRUGS (2)
  1. KENALOG-40 [Suspect]
     Indication: DERMATITIS CONTACT
     Dosage: 40MG ONCE RIGHT BOTTOCKS
     Dates: start: 20090124
  2. TOPICAL STEROID [Concomitant]

REACTIONS (1)
  - MUSCLE ATROPHY [None]
